FAERS Safety Report 6462739-6 (Version None)
Quarter: 2009Q4

REPORT INFORMATION
  Report Type: 
  Country: None (occurrence: None)
  Receive Date: 20091130
  Receipt Date: 20091124
  Transmission Date: 20100525
  Serious: Yes (Death)
  Sender: FDA-Public Use
  Company Number: US-GILEAD-2009-0025383

PATIENT
  Sex: Female

DRUGS (9)
  1. LETAIRIS [Suspect]
     Indication: PULMONARY ARTERIAL HYPERTENSION
     Route: 048
     Dates: start: 20091018, end: 20091101
  2. REVATIO [Concomitant]
  3. COUMADIN [Concomitant]
  4. FLOLAN [Concomitant]
  5. CROMOLYN SODIUM [Concomitant]
  6. ALLEGRA [Concomitant]
  7. LYRICA [Concomitant]
  8. DIGITEK [Concomitant]
  9. IRON [Concomitant]

REACTIONS (1)
  - DEATH [None]
